FAERS Safety Report 5412987-9 (Version None)
Quarter: 2007Q3

REPORT INFORMATION
  Report Type: 
  Country: None (occurrence: None)
  Receive Date: 20070809
  Receipt Date: 20070726
  Transmission Date: 20080115
  Serious: Yes (Hospitalization, Other)
  Sender: FDA-Public Use
  Company Number: PAR_01658_2007

PATIENT
  Age: 53 Year
  Sex: Female

DRUGS (3)
  1. TRAMADOL HCL [Suspect]
     Indication: PAIN
     Dosage: (200 MG DF)
  2. PAROXETINE [Suspect]
     Indication: PAIN
  3. ALPRAZOLAM [Concomitant]

REACTIONS (9)
  - ABNORMAL BEHAVIOUR [None]
  - AFFECT LABILITY [None]
  - DELUSION OF GRANDEUR [None]
  - DYSARTHRIA [None]
  - MANIA [None]
  - MYDRIASIS [None]
  - PAIN [None]
  - PRESSURE OF SPEECH [None]
  - SEROTONIN SYNDROME [None]
